FAERS Safety Report 8218545-5 (Version None)
Quarter: 2012Q1

REPORT INFORMATION
  Report Type: 
  Country: None (occurrence: None)
  Receive Date: 20120319
  Receipt Date: 20120314
  Transmission Date: 20120608
  Serious: No
  Sender: FDA-Public Use
  Company Number: US-BAYER-2012-025319

PATIENT
  Sex: Male

DRUGS (2)
  1. BETAPACE [Suspect]
  2. TIKOSYN [Concomitant]

REACTIONS (1)
  - ATRIAL FIBRILLATION [None]
